FAERS Safety Report 12245015 (Version 1)
Quarter: 2016Q2

REPORT INFORMATION
  Report Type: Spontaneous
  Country: NL (occurrence: NL)
  Receive Date: 20160407
  Receipt Date: 20160407
  Transmission Date: 20160815
  Serious: Yes (Other)
  Sender: FDA-Public Use
  Company Number: NL-TEVA-644017ACC

PATIENT
  Age: 48 Year
  Sex: Female
  Weight: 61 kg

DRUGS (2)
  1. TAMOXIFEN TABLET 20MG [Suspect]
     Active Substance: TAMOXIFEN
     Indication: BREAST CANCER
     Dosage: 10 MILLIGRAM DAILY; ONCE DAILY 0,5 PIECE; DAILY DOSE: 10MILLIGRAM
     Route: 048
     Dates: start: 20160108
  2. HIZENTRA INJVLST 200MG/ML FLACON  5ML [Concomitant]
     Dosage: TWICE WEEKLY ONE PIECE
     Route: 058
     Dates: start: 2012

REACTIONS (6)
  - Nausea [Recovered/Resolved]
  - Emotional disorder [Recovered/Resolved]
  - Suicidal ideation [Recovered/Resolved]
  - Headache [Recovered/Resolved]
  - Hot flush [Recovering/Resolving]
  - Depressed mood [Recovered/Resolved]

NARRATIVE: CASE EVENT DATE: 20160110
